FAERS Safety Report 11651687 (Version 1)
Quarter: 2015Q4

REPORT INFORMATION
  Report Type: Spontaneous
  Country: US (occurrence: None)
  Receive Date: 20151021
  Receipt Date: 20151021
  Transmission Date: 20160304
  Serious: Yes (Hospitalization, Disabling, Other)
  Sender: FDA-Public Use
  Company Number: None

PATIENT
  Age: 79 Year
  Sex: Female
  Weight: 80.74 kg

DRUGS (16)
  1. CATAPRES [Concomitant]
     Active Substance: CLONIDINE HYDROCHLORIDE
  2. 1 A DAY VITAMIN [Concomitant]
     Active Substance: VITAMINS
  3. COREG [Concomitant]
     Active Substance: CARVEDILOL
  4. LEVOTHROID [Concomitant]
     Active Substance: LEVOTHYROXINE SODIUM
  5. COZAR [Concomitant]
  6. VITAMIN D3 [Concomitant]
     Active Substance: CHOLECALCIFEROL
  7. RESTASIS [Concomitant]
     Active Substance: CYCLOSPORINE
  8. CALCIUM [Concomitant]
     Active Substance: CALCIUM
  9. VIT V [Concomitant]
  10. COQ10 [Concomitant]
     Active Substance: UBIDECARENONE
  11. LIPITOR [Concomitant]
     Active Substance: ATORVASTATIN CALCIUM
  12. VIT B+ [Concomitant]
  13. AMIODARONE [Suspect]
     Active Substance: AMIODARONE
     Indication: ATRIAL FIBRILLATION
     Dosage: 1 PILL
     Route: 048
     Dates: start: 20130623, end: 20140921
  14. OXYGEN. [Concomitant]
     Active Substance: OXYGEN
  15. LASIX [Concomitant]
     Active Substance: FUROSEMIDE
  16. FISH OIL [Concomitant]
     Active Substance: FISH OIL

REACTIONS (3)
  - Toxicity to various agents [None]
  - Bronchiectasis [None]
  - Interstitial lung disease [None]

NARRATIVE: CASE EVENT DATE: 20140921
